FAERS Safety Report 4548559-8 (Version None)
Quarter: 2004Q4

REPORT INFORMATION
  Report Type: 
  Country: None (occurrence: None)
  Receive Date: 20041227
  Receipt Date: 20040920
  Transmission Date: 20050328
  Serious: No
  Sender: FDA-Public Use
  Company Number: 04P-163-0273928-00

PATIENT
  Age: 59 Year
  Sex: Female
  Weight: 80.2867 kg

DRUGS (12)
  1. HUMIRA [Suspect]
     Indication: RHEUMATOID ARTHRITIS
     Dosage: 40 MG, 1 IN 2 WK, SUBCUTANEOUS
     Route: 058
     Dates: start: 20040820
  2. PREDNISONE [Concomitant]
  3. INDAPAMIDE [Concomitant]
  4. LEVOTHYROXINE SODIUM [Concomitant]
  5. SERTRALINE HYDROCHLORIDE [Concomitant]
  6. ALPRAZOLAM [Concomitant]
  7. ATORVASTATIN [Concomitant]
  8. ESTROGENS CONJUGATED [Concomitant]
  9. ALENDRONATE SODIUM [Concomitant]
  10. ZOLPIDEM TARTRATE [Concomitant]
  11. BUCINDOLOL HYDROCHLORIDE [Concomitant]
  12. CORAL CALCIUM [Concomitant]

REACTIONS (2)
  - CHILLS [None]
  - INJECTION SITE PAIN [None]
